FAERS Safety Report 6159156-5 (Version None)
Quarter: 2009Q2

REPORT INFORMATION
  Report Type: 
  Country: None (occurrence: None)
  Receive Date: 20090417
  Receipt Date: 20090407
  Transmission Date: 20091009
  Serious: Yes (Hospitalization)
  Sender: FDA-Public Use
  Company Number: US-ELI_LILLY_AND_COMPANY-US200902006017

PATIENT
  Sex: Male

DRUGS (6)
  1. CYMBALTA [Suspect]
     Indication: DEPRESSION
     Dosage: 60 MG, 2/D
     Dates: start: 20090201
  2. DIOVAN [Concomitant]
  3. NORVASC [Concomitant]
  4. POTASSIUM CHLORIDE [Concomitant]
  5. ZOCOR [Concomitant]
  6. REMERON [Concomitant]

REACTIONS (1)
  - DEPRESSION [None]
